FAERS Safety Report 7205550-0 (Version None)
Quarter: 2010Q4

REPORT INFORMATION
  Report Type: 
  Country: None (occurrence: None)
  Receive Date: 20101231
  Receipt Date: 20101222
  Transmission Date: 20110411
  Serious: Yes (Hospitalization)
  Sender: FDA-Public Use
  Company Number: PHHY2010US87784

PATIENT
  Sex: Female

DRUGS (11)
  1. EXTAVIA [Suspect]
     Indication: MULTIPLE SCLEROSIS
     Dosage: 0.25 MG, QOD
     Dates: start: 20101104
  2. FENTANYL CITRATE [Concomitant]
     Dosage: UNK
  3. PROZAC [Concomitant]
     Dosage: UNK
  4. ABILIFY [Concomitant]
     Dosage: UNK
  5. NAMENDA [Concomitant]
     Dosage: UNK
  6. DARVOCET-N 100 [Concomitant]
     Dosage: UNK
  7. AMPYRA [Concomitant]
     Dosage: UNK
  8. THYROID PREPARATIONS [Concomitant]
     Dosage: UNK
  9. VITAMIN D [Concomitant]
     Dosage: UNK
  10. GABAPENTIN [Concomitant]
     Dosage: UNK
  11. BACLOFEN [Concomitant]
     Dosage: UNK

REACTIONS (4)
  - INJECTION SITE ERYTHEMA [None]
  - RADICAL MASTECTOMY [None]
  - RED BLOOD CELL COUNT DECREASED [None]
  - WHITE BLOOD CELL COUNT DECREASED [None]
